FAERS Safety Report 15294491 (Version 2)
Quarter: 2021Q1

REPORT INFORMATION
  Report Type: Report from Study
  Country: US (occurrence: US)
  Receive Date: 20180820
  Receipt Date: 20210331
  Transmission Date: 20210419
  Serious: No
  Sender: FDA-Public Use
  Company Number: US-ACADIA PHARMACEUTICALS INC.-ACA-2018-009262

PATIENT
  Age: 67 Year
  Sex: Female

DRUGS (5)
  1. NUPLAZID [Suspect]
     Active Substance: PIMAVANSERIN TARTRATE
     Indication: PARKINSON^S DISEASE
     Dosage: 44 MILLIGRAM, QD (1 10 MG TABLET WITH 1 34 MG CAPSULE)
     Route: 048
     Dates: start: 20190118
  2. SEROQUEL [Concomitant]
     Active Substance: QUETIAPINE FUMARATE
     Indication: PRODUCT USED FOR UNKNOWN INDICATION
  3. NUPLAZID [Suspect]
     Active Substance: PIMAVANSERIN TARTRATE
     Indication: PARKINSON^S DISEASE
     Dosage: 44 MILLIGRAM, QD (1 10 MG TABLET WITH 1 34 MG CAPSULE)
     Route: 048
     Dates: start: 20190118
  4. NUPLAZID [Suspect]
     Active Substance: PIMAVANSERIN TARTRATE
     Indication: PARKINSON^S DISEASE
     Dosage: 34 MG, QD
     Route: 048
     Dates: start: 20180518
  5. NUPLAZID [Suspect]
     Active Substance: PIMAVANSERIN TARTRATE
     Dosage: 51 MG, QD
     Route: 048

REACTIONS (5)
  - Hallucination [Unknown]
  - Overdose [Unknown]
  - Confusional state [Unknown]
  - Hallucination [Unknown]
  - Prescribed overdose [Unknown]

NARRATIVE: CASE EVENT DATE: 20180611
